FAERS Safety Report 23575865 (Version 2)
Quarter: 2024Q1

REPORT INFORMATION
  Report Type: Spontaneous
  Country: US (occurrence: US)
  Receive Date: 20240228
  Receipt Date: 20240306
  Transmission Date: 20240409
  Serious: Yes (Death, Hospitalization, Other)
  Sender: FDA-Public Use
  Company Number: US-drreddys-SPO/USA/23/0187906

PATIENT
  Age: 67 Year
  Sex: Female

DRUGS (2)
  1. SAPROPTERIN DIHYDROCHLORIDE [Suspect]
     Active Substance: SAPROPTERIN DIHYDROCHLORIDE
     Indication: Phenylketonuria
     Dosage: 2000 MG, DAILY
     Route: 048
     Dates: end: 20240220
  2. SAPROPTERIN DIHYDROCHLORIDE [Suspect]
     Active Substance: SAPROPTERIN DIHYDROCHLORIDE

REACTIONS (6)
  - Hallucination [Not Recovered/Not Resolved]
  - Hepatic failure [Fatal]
  - Renal impairment [Fatal]
  - Hypotension [Fatal]
  - Urosepsis [Fatal]
  - Urinary tract infection [Fatal]
